FAERS Safety Report 5964842-3 (Version None)
Quarter: 2008Q4

REPORT INFORMATION
  Report Type: 
  Country: None (occurrence: None)
  Receive Date: 20081120
  Receipt Date: 20081105
  Transmission Date: 20090506
  Serious: Yes (Other)
  Sender: FDA-Public Use
  Company Number: 2008S1019888

PATIENT
  Age: 82 Year
  Sex: Female

DRUGS (4)
  1. PAROXETINE MERCK (PAROXETINE HYDROCHLORIDE) (20 MG) [Suspect]
     Indication: DEPRESSION
     Dosage: 20 MG;DAILY;ORAL
     Route: 048
     Dates: end: 20081102
  2. ZYPREXA [Suspect]
  3. DEROXAT [Concomitant]
  4. CARDENSIEL [Concomitant]

REACTIONS (2)
  - LOSS OF CONSCIOUSNESS [None]
  - URINARY RETENTION [None]
